FAERS Safety Report 18841396 (Version 3)
Quarter: 2021Q2

REPORT INFORMATION
  Report Type: Spontaneous
  Country: US (occurrence: US)
  Receive Date: 20210203
  Receipt Date: 20210405
  Transmission Date: 20210717
  Serious: No
  Sender: FDA-Public Use
  Company Number: US-PFIZER INC-2021076263

PATIENT

DRUGS (1)
  1. ESTRING [Suspect]
     Active Substance: ESTRADIOL
     Dosage: UNK ^PRESCRIBED THE ESTRING BY MY OBGYN, WITH QUARTERLY REFILLS^

REACTIONS (1)
  - Device difficult to use [Unknown]
